FAERS Safety Report 16618936 (Version 2)
Quarter: 2019Q3

REPORT INFORMATION
  Report Type: Spontaneous
  Country: HU (occurrence: HU)
  Receive Date: 20190723
  Receipt Date: 20190813
  Transmission Date: 20191004
  Serious: Yes (Hospitalization, Other)
  Sender: FDA-Public Use
  Company Number: PHHY2019HU165328

PATIENT
  Age: 44 Year
  Sex: Female

DRUGS (5)
  1. OLANZAPINE. [Suspect]
     Active Substance: OLANZAPINE
     Indication: COTARD^S SYNDROME
     Route: 065
  2. QUETIAPINE. [Suspect]
     Active Substance: QUETIAPINE
     Indication: COTARD^S SYNDROME
     Dosage: UNK
     Route: 065
  3. ALPRAZOLAM. [Suspect]
     Active Substance: ALPRAZOLAM
     Indication: PRODUCT USED FOR UNKNOWN INDICATION
     Route: 065
  4. AGOMELATINE [Suspect]
     Active Substance: AGOMELATINE
     Indication: PRODUCT USED FOR UNKNOWN INDICATION
     Route: 065
  5. DULOXETINE. [Suspect]
     Active Substance: DULOXETINE
     Indication: COTARD^S SYNDROME
     Route: 065

REACTIONS (22)
  - Hashimoto^s encephalopathy [Recovering/Resolving]
  - Malaise [Recovered/Resolved]
  - Delusion [Recovered/Resolved]
  - Psychomotor retardation [Recovered/Resolved]
  - Memory impairment [Recovered/Resolved]
  - Gait disturbance [Recovered/Resolved]
  - Persistent depressive disorder [Recovered/Resolved]
  - CSF protein increased [Recovered/Resolved]
  - Eructation [Recovered/Resolved]
  - Cotard^s syndrome [Recovered/Resolved]
  - Cognitive disorder [Recovered/Resolved]
  - Behaviour disorder [Recovered/Resolved]
  - Urinary incontinence [Recovered/Resolved]
  - Therapy non-responder [Unknown]
  - Fear of death [Recovered/Resolved]
  - Thyroid hormones increased [Recovered/Resolved]
  - Pain [Recovered/Resolved]
  - Major depression [Recovered/Resolved]
  - Anosmia [Recovered/Resolved]
  - Social problem [Recovered/Resolved]
  - Anxiety [Recovered/Resolved]
  - Ageusia [Recovered/Resolved]
